FAERS Safety Report 5406211-0 (Version None)
Quarter: 2007Q3

REPORT INFORMATION
  Report Type: 
  Country: None (occurrence: None)
  Receive Date: 20070806
  Receipt Date: 20070801
  Transmission Date: 20080115
  Serious: Yes (Death)
  Sender: FDA-Public Use
  Company Number: SE-BAYER-200714438GDS

PATIENT
  Age: 86 Year
  Sex: Female

DRUGS (13)
  1. CIPROXIN [Suspect]
     Indication: URINARY TRACT INFECTION
     Dosage: UNIT DOSE: 500 MG
     Route: 048
     Dates: start: 20070506, end: 20070512
  2. METOPROLOL SUCCINATE [Concomitant]
     Indication: DRUG USE FOR UNKNOWN INDICATION
     Route: 065
  3. KONAKION [Concomitant]
     Indication: DRUG USE FOR UNKNOWN INDICATION
     Route: 065
  4. DUROFERON [Concomitant]
     Indication: DRUG USE FOR UNKNOWN INDICATION
  5. SODIUM CHLORIDE [Concomitant]
     Indication: DRUG USE FOR UNKNOWN INDICATION
  6. FURIX [Concomitant]
     Indication: DRUG USE FOR UNKNOWN INDICATION
     Route: 065
  7. SPIRONOLACTONE [Concomitant]
     Indication: DRUG USE FOR UNKNOWN INDICATION
  8. TRIMETOPRIM [Concomitant]
     Indication: DRUG USE FOR UNKNOWN INDICATION
  9. OMEPRAZOLE [Concomitant]
     Indication: DRUG USE FOR UNKNOWN INDICATION
     Route: 065
  10. IMDUR [Concomitant]
     Indication: DRUG USE FOR UNKNOWN INDICATION
  11. BETABION [Concomitant]
     Indication: DRUG USE FOR UNKNOWN INDICATION
  12. CALCICHEW D3 [Concomitant]
     Indication: DRUG USE FOR UNKNOWN INDICATION
  13. OCULAC [Concomitant]
     Indication: DRUG USE FOR UNKNOWN INDICATION

REACTIONS (5)
  - APATHY [None]
  - FATIGUE [None]
  - HEPATIC FAILURE [None]
  - PRURITUS [None]
  - SUBCUTANEOUS HAEMATOMA [None]
